FAERS Safety Report 6051022-9 (Version None)
Quarter: 2009Q1

REPORT INFORMATION
  Report Type: 
  Country: None (occurrence: None)
  Receive Date: 20090121
  Receipt Date: 20090107
  Transmission Date: 20090719
  Serious: Yes (Hospitalization)
  Sender: FDA-Public Use
  Company Number: 1000003539

PATIENT
  Age: 84 Year
  Sex: Female

DRUGS (11)
  1. MEMANTINE HCL [Suspect]
     Indication: DEMENTIA ALZHEIMER'S TYPE
     Dosage: ORAL
     Route: 048
     Dates: start: 20080701, end: 20080729
  2. MEMANTINE HCL [Suspect]
     Indication: DEMENTIA ALZHEIMER'S TYPE
     Dosage: ORAL
     Route: 048
     Dates: start: 20080807
  3. NORSET (15 MILLIGRAM) [Suspect]
     Indication: DEPRESSION
     Dosage: 30 MG (15 MG, 2 IN 1 D), ORAL
     Route: 048
     Dates: start: 20020101, end: 20080729
  4. BROMAZEPAM [Concomitant]
  5. NOOTROPYL [Concomitant]
  6. CACIT VITAMIN D3 [Concomitant]
  7. ALUMINUM HYDROXIDE AND MAGNESIUM TRISILICATE [Concomitant]
  8. OXYBUTYNINE [Concomitant]
  9. CORTANCYL [Concomitant]
  10. TOPLEXIL (SYRUP) [Concomitant]
  11. NASACORT (NASAL DROPS (INCLUDING NASAL SPRAY) [Concomitant]

REACTIONS (15)
  - AGRANULOCYTOSIS [None]
  - BACK PAIN [None]
  - C-REACTIVE PROTEIN INCREASED [None]
  - CARDIAC MURMUR [None]
  - CREPITATIONS [None]
  - DEMENTIA ALZHEIMER'S TYPE [None]
  - ELECTROCARDIOGRAM ABNORMAL [None]
  - HEART SOUNDS ABNORMAL [None]
  - HYPOALBUMINAEMIA [None]
  - ILL-DEFINED DISORDER [None]
  - LEUKOPENIA [None]
  - LYMPHOCYTE COUNT INCREASED [None]
  - MEDICATION ERROR [None]
  - PYREXIA [None]
  - RALES [None]
